FAERS Safety Report 4481028-2 (Version None)
Quarter: 2004Q4

REPORT INFORMATION
  Report Type: 
  Country: None (occurrence: None)
  Receive Date: 20041020
  Receipt Date: 20041020
  Transmission Date: 20050328
  Serious: No
  Sender: FDA-Public Use
  Company Number: None

PATIENT
  Sex: Female
  Weight: 81.3 kg

DRUGS (5)
  1. CETUXIMAB [Suspect]
     Indication: RECTAL CANCER
     Dosage: 744 MG IV X 1 THEN 465 MG WEEKLY
     Route: 042
     Dates: start: 20040603
  2. DIPHENHYDRAMINE HCL [Concomitant]
  3. HYDROXYZINE [Concomitant]
  4. DIGOXIN [Concomitant]
  5. DILTIAZEM [Concomitant]

REACTIONS (1)
  - BRADYCARDIA [None]
